FAERS Safety Report 4546587-X (Version None)
Quarter: 2005Q1

REPORT INFORMATION
  Report Type: 
  Country: None (occurrence: None)
  Receive Date: 20050103
  Receipt Date: 20041215
  Transmission Date: 20050727
  Serious: Yes (Death)
  Sender: FDA-Public Use
  Company Number: EWC041241787

PATIENT
  Age: 62 Year
  Sex: Female

DRUGS (10)
  1. FORTEO [Suspect]
     Indication: OSTEOPOROSIS
     Dosage: 20 UG/1 DAY
     Dates: start: 20040628
  2. CALCICHEW D3 [Concomitant]
  3. BEHEPAN  (CYANOCOBALAMIN) [Concomitant]
  4. ACETAMINOPHEN [Concomitant]
  5. DEXOFEN       (DEXTROPROPOXYPHENE NAPSILATE) [Concomitant]
  6. METHOTREXATE                      (METHOTREXATE FARMOS) [Concomitant]
  7. PREDNISOLONE [Concomitant]
  8. CITALOPRAM HYDROBROMIDE [Concomitant]
  9. RABEPRAZOLE SODIUM [Concomitant]
  10. ESTRADERM [Concomitant]

REACTIONS (1)
  - ACUTE MYOCARDIAL INFARCTION [None]
